FAERS Safety Report 5833696-8 (Version None)
Quarter: 2008Q3

REPORT INFORMATION
  Report Type: 
  Country: None (occurrence: None)
  Receive Date: 20080804
  Receipt Date: 20080804
  Transmission Date: 20090109
  Serious: Yes (Death, Life-Threatening, Hospitalization)
  Sender: FDA-Public Use
  Company Number: None

PATIENT
  Sex: Female
  Weight: 61.2356 kg

DRUGS (1)
  1. AMIODARONE HCL [Suspect]
     Indication: ATRIAL FIBRILLATION
     Dosage: 200 MG. DAILY ORALLY
     Route: 048
     Dates: start: 20040301

REACTIONS (11)
  - ANOREXIA [None]
  - ATRIAL FIBRILLATION [None]
  - CARDIAC FAILURE [None]
  - COLLAPSE OF LUNG [None]
  - HEPATIC FAILURE [None]
  - INSOMNIA [None]
  - INTERSTITIAL LUNG DISEASE [None]
  - PNEUMOTHORAX [None]
  - RENAL FAILURE [None]
  - TREMOR [None]
  - UPPER RESPIRATORY TRACT INFECTION [None]
